FAERS Safety Report 8301112-2 (Version None)
Quarter: 2012Q2

REPORT INFORMATION
  Report Type: 
  Country: None (occurrence: None)
  Receive Date: 20120420
  Receipt Date: 20120413
  Transmission Date: 20120825
  Serious: Yes (Hospitalization)
  Sender: FDA-Public Use
  Company Number: US-TEVA-333466USA

PATIENT
  Sex: Male
  Weight: 81.72 kg

DRUGS (7)
  1. CLONAZEPAM [Concomitant]
     Indication: ANXIETY
     Dosage: 2 MILLIGRAM;
  2. FOLIC ACID [Concomitant]
  3. VITAMIN D [Concomitant]
  4. NUVIGIL [Suspect]
     Dosage: 250 MILLIGRAM;
     Dates: end: 20120101
  5. PREDNISONE TAB [Concomitant]
     Indication: ADDISON'S DISEASE
     Dosage: 10 MILLIGRAM;
  6. VENLAFAXINE [Concomitant]
     Indication: DEPRESSION
  7. LEVOTHYROXINE SODIUM [Concomitant]

REACTIONS (10)
  - MOVEMENT DISORDER [None]
  - HEAD DISCOMFORT [None]
  - BLOOD PRESSURE ABNORMAL [None]
  - ASTHENIA [None]
  - INSOMNIA [None]
  - DEPRESSED LEVEL OF CONSCIOUSNESS [None]
  - NAUSEA [None]
  - GASTROENTERITIS VIRAL [None]
  - HYPERSOMNIA [None]
  - VOMITING [None]
